FAERS Safety Report 8380953-X (Version None)
Quarter: 2012Q1

REPORT INFORMATION
  Report Type: 
  Country: None (occurrence: None)
  Receive Date: 20120323
  Receipt Date: 20110223
  Transmission Date: 20120608
  Serious: Yes (Other)
  Sender: FDA-Public Use
  Company Number: 163-21880-11023174

PATIENT
  Age: 59 Year
  Sex: Male

DRUGS (4)
  1. ZOLINZA (VORINOSTAT) [Concomitant]
  2. REVLIMID [Suspect]
     Indication: MULTIPLE MYELOMA
     Dosage: 15 MG, 1 IN 1 D, PO; 5 MG-25MG, PO; 5 MG, DAYS 1-28, PO
     Route: 048
     Dates: start: 20100901
  3. REVLIMID [Suspect]
     Indication: MULTIPLE MYELOMA
     Dosage: 15 MG, 1 IN 1 D, PO; 5 MG-25MG, PO; 5 MG, DAYS 1-28, PO
     Route: 048
     Dates: start: 20091201
  4. REVLIMID [Suspect]
     Indication: MULTIPLE MYELOMA
     Dosage: 15 MG, 1 IN 1 D, PO; 5 MG-25MG, PO; 5 MG, DAYS 1-28, PO
     Route: 048
     Dates: start: 20081101

REACTIONS (2)
  - DEEP VEIN THROMBOSIS [None]
  - EPISTAXIS [None]
